FAERS Safety Report 9504059 (Version 1)
Quarter: 2013Q1

REPORT INFORMATION
  Report Type: Spontaneous
  Country: US (occurrence: None)
  Receive Date: 20130107
  Receipt Date: 20130107
  Transmission Date: 20140127
  Serious: No
  Sender: FDA-Public Use
  Company Number: PHEH2012US019911

PATIENT
  Age: 56 Year
  Sex: Male

DRUGS (12)
  1. GILENYA [Suspect]
     Route: 048
     Dates: start: 201205
  2. OXYBUTYNIN CHLORIDE (OXYBUTYNIN HYDROCHLORIDE) [Concomitant]
  3. TAMSULOSIN  HYDROCHLORI8DE (TAMSULOSIN HYDROCHLORIDE) [Concomitant]
  4. ASPIRIN (ACETYLSALICYLIC ACID) [Concomitant]
  5. VITAMIN B6 (PYRIDOXINE HYDROCHLORIDE) [Concomitant]
  6. TROSPIUM CHLORIDE (TROSPIUM CHLORIDE) [Concomitant]
  7. SELENIUM (SELENIUM) [Concomitant]
  8. VITAMIN B12 (CYANOCOBALAMIN) [Concomitant]
  9. FISH OIL (FISH OIL) [Concomitant]
  10. ALEVE (NAPROXEN SODIUIM) [Concomitant]
  11. GLUCOSAMINE (GLUCOSAMINE) [Concomitant]
  12. CITRACAL + DA (CALCIUM CITRATE, ERGOCALCIFEROL) [Concomitant]

REACTIONS (2)
  - Flatulence [None]
  - Weight decreased [None]
